FAERS Safety Report 8049079-9 (Version None)
Quarter: 2011Q4

REPORT INFORMATION
  Report Type: 
  Country: None (occurrence: None)
  Receive Date: 20111209
  Receipt Date: 20110908
  Transmission Date: 20120403
  Serious: No
  Sender: FDA-Public Use
  Company Number: 2011SP042505

PATIENT
  Age: 59 Year
  Sex: Female

DRUGS (3)
  1. RIBAVIRIN [Concomitant]
  2. VICTRELIS [Suspect]
     Indication: HEPATITIS C
     Dosage: 4 DF; TID;PO
     Route: 048
     Dates: start: 20110801
  3. PEG-INTRON [Suspect]
     Indication: PRODUCT USED FOR UNKNOWN INDICATION

REACTIONS (1)
  - VOMITING [None]
